FAERS Safety Report 7834067-5 (Version None)
Quarter: 2011Q4

REPORT INFORMATION
  Report Type: 
  Country: None (occurrence: None)
  Receive Date: 20111024
  Receipt Date: 20111024
  Transmission Date: 20120403
  Serious: No
  Sender: FDA-Public Use
  Company Number: None

PATIENT
  Sex: Female
  Weight: 97.522 kg

DRUGS (1)
  1. CIPROFLOXACIN HCL [Suspect]
     Indication: BACTERIURIA
     Dosage: 1 TABLET
     Route: 048
     Dates: start: 20110329, end: 20110402

REACTIONS (5)
  - IMPAIRED HEALING [None]
  - PAIN [None]
  - MENISCUS LESION [None]
  - TENDONITIS [None]
  - PAIN IN EXTREMITY [None]
